FAERS Safety Report 18687578 (Version 2)
Quarter: 2021Q1

REPORT INFORMATION
  Report Type: Spontaneous
  Country: US (occurrence: US)
  Receive Date: 20201231
  Receipt Date: 20210121
  Transmission Date: 20210419
  Serious: Yes (Life-Threatening, Hospitalization, Other)
  Sender: FDA-Public Use
  Company Number: US-SA-2020SA376440

PATIENT
  Age: 72 Year
  Sex: Female
  Weight: 54.4 kg

DRUGS (11)
  1. KETAMINE [Suspect]
     Active Substance: KETAMINE
     Indication: MAINTENANCE OF ANAESTHESIA
     Dosage: 5 UG/KG, QMN (3?5 ?G/KG/MIN)
  2. TRAMADOL. [Concomitant]
     Active Substance: TRAMADOL
     Indication: ORAL PAIN
     Dosage: UNK
  3. ISOFLURANE. [Suspect]
     Active Substance: ISOFLURANE
     Indication: MAINTENANCE OF ANAESTHESIA
     Dosage: 0.8 %
  4. LIDOCAINE. [Suspect]
     Active Substance: LIDOCAINE
     Indication: MAINTENANCE OF ANAESTHESIA
     Dosage: 2 MG, QMN
  5. SUFENTANIL [Suspect]
     Active Substance: SUFENTANIL
     Indication: MAINTENANCE OF ANAESTHESIA
     Dosage: 0.1?0.5 UG/KG/HR
  6. PROPOFOL. [Suspect]
     Active Substance: PROPOFOL
     Indication: MAINTENANCE OF ANAESTHESIA
     Dosage: 50 UG/KG, QMN (25?50 ?G/KG/MIN)
  7. KETAMINE [Suspect]
     Active Substance: KETAMINE
     Dosage: 3 ?G/KG/MIN
  8. SUFENTANIL [Suspect]
     Active Substance: SUFENTANIL
     Dosage: 0.1 UG/KG, QH
  9. PROPOFOL. [Suspect]
     Active Substance: PROPOFOL
     Dosage: 25 UG/KG, QMN
  10. ISOFLURANE. [Suspect]
     Active Substance: ISOFLURANE
     Dosage: 0.5 %
  11. LOSARTAN. [Concomitant]
     Active Substance: LOSARTAN
     Indication: HYPERTENSION
     Dosage: UNK

REACTIONS (3)
  - Pulse pressure increased [Recovered/Resolved]
  - Procedural hypotension [Recovered/Resolved]
  - Vasoplegia syndrome [Recovered/Resolved]
